FAERS Safety Report 5047301-4 (Version None)
Quarter: 2006Q2

REPORT INFORMATION
  Report Type: 
  Country: None (occurrence: None)
  Receive Date: 20060601
  Receipt Date: 20060215
  Transmission Date: 20061013
  Serious: No
  Sender: FDA-Public Use
  Company Number: 2006PV008790

PATIENT
  Age: 74 Year
  Sex: Female
  Weight: 74.3899 kg

DRUGS (3)
  1. BYETTA [Suspect]
     Indication: DIABETES MELLITUS NON-INSULIN-DEPENDENT
     Dosage: 5 MCG;BID;SC; SEE IMAGE
     Route: 058
     Dates: start: 20050901, end: 20051001
  2. BYETTA [Suspect]
     Indication: DIABETES MELLITUS NON-INSULIN-DEPENDENT
     Dosage: 5 MCG;BID;SC; SEE IMAGE
     Route: 058
     Dates: start: 20051001, end: 20051201
  3. BYETTA [Suspect]
     Indication: DIABETES MELLITUS NON-INSULIN-DEPENDENT
     Dosage: 5 MCG;BID;SC; SEE IMAGE
     Route: 058
     Dates: start: 20051201

REACTIONS (7)
  - ABDOMINAL DISCOMFORT [None]
  - FAECES HARD [None]
  - INFREQUENT BOWEL MOVEMENTS [None]
  - NAUSEA [None]
  - PRURITUS GENERALISED [None]
  - WEIGHT DECREASED [None]
  - WEIGHT INCREASED [None]
